FAERS Safety Report 16266186 (Version 1)
Quarter: 2019Q2

REPORT INFORMATION
  Report Type: Report from Study
  Country: US (occurrence: US)
  Receive Date: 20190502
  Receipt Date: 20190502
  Transmission Date: 20190711
  Serious: Yes (Death)
  Sender: FDA-Public Use
  Company Number: US-EXELIXIS-CABO-19020668

PATIENT
  Sex: Male

DRUGS (2)
  1. CABOMETYX [Suspect]
     Active Substance: CABOZANTINIB S-MALATE
     Indication: MESOTHELIOMA
     Dosage: 40 MG, QD (IN MORNING WITHOUT FOOD)
     Route: 048
     Dates: start: 20190105, end: 20190118
  2. CABOMETYX [Suspect]
     Active Substance: CABOZANTINIB S-MALATE
     Indication: NEOPLASM MALIGNANT
     Dosage: 40 MG, QD (IN MORNING WITHOUT FOOD)
     Route: 048
     Dates: start: 20190216

REACTIONS (2)
  - Off label use [Unknown]
  - Death [Fatal]
